FAERS Safety Report 12843625 (Version 1)
Quarter: 2016Q4

REPORT INFORMATION
  Report Type: Spontaneous
  Country: US (occurrence: US)
  Receive Date: 20161013
  Receipt Date: 20161013
  Transmission Date: 20170207
  Serious: No
  Sender: FDA-Public Use
  Company Number: US-TEVA-701905USA

PATIENT
  Age: 34 Year
  Sex: Female

DRUGS (16)
  1. COPAXONE [Suspect]
     Active Substance: GLATIRAMER ACETATE
     Indication: MULTIPLE SCLEROSIS
     Route: 058
     Dates: start: 20120912
  2. TERBINAFINE. [Concomitant]
     Active Substance: TERBINAFINE
     Dates: start: 20120827
  3. BENADRYL [Concomitant]
     Active Substance: DIPHENHYDRAMINE HYDROCHLORIDE
     Dates: start: 20120827
  4. GABAPENTIN. [Concomitant]
     Active Substance: GABAPENTIN
     Dates: start: 20120827
  5. LEVETIRACETAM. [Concomitant]
     Active Substance: LEVETIRACETAM
     Dosage: 750 MILLIGRAM DAILY;
     Dates: start: 20120827
  6. OXYBUTYNIN [Concomitant]
     Active Substance: OXYBUTYNIN
     Dates: start: 20120827
  7. SPIRONOLACTONE. [Concomitant]
     Active Substance: SPIRONOLACTONE
     Dates: start: 20120827
  8. HYDROMORPHONE [Concomitant]
     Active Substance: HYDROMORPHONE
     Dates: start: 20120827
  9. AMANTADINE [Concomitant]
     Active Substance: AMANTADINE
     Dates: start: 20120827
  10. NAMENDA [Concomitant]
     Active Substance: MEMANTINE HYDROCHLORIDE
     Dates: start: 20120827
  11. METHADONE [Concomitant]
     Active Substance: METHADONE HYDROCHLORIDE
     Dates: start: 20120827
  12. ONDANSETRON [Concomitant]
     Active Substance: ONDANSETRON
     Dates: start: 20120827
  13. CARBAMAZEPINE. [Concomitant]
     Active Substance: CARBAMAZEPINE
     Dates: start: 20120827
  14. BACLOFEN. [Concomitant]
     Active Substance: BACLOFEN
     Dates: start: 20120827
  15. TRAMADOL HCL [Concomitant]
     Active Substance: TRAMADOL HYDROCHLORIDE
     Dates: start: 20120827
  16. IBU [Concomitant]
     Active Substance: IBUPROFEN
     Dates: start: 20120827

REACTIONS (3)
  - Hypoaesthesia [Unknown]
  - Eye disorder [Unknown]
  - Fall [Recovered/Resolved]

NARRATIVE: CASE EVENT DATE: 201609
